FAERS Safety Report 25257436 (Version 1)
Quarter: 2025Q2

REPORT INFORMATION
  Report Type: Report from Study
  Country: US (occurrence: US)
  Receive Date: 20250430
  Receipt Date: 20250430
  Transmission Date: 20250717
  Serious: Yes (Death)
  Sender: DAIICHI
  Company Number: US-DSJP-DS-2025-138704-US

PATIENT
  Age: 70 Year
  Sex: Male

DRUGS (1)
  1. ENHERTU [Suspect]
     Active Substance: FAM-TRASTUZUMAB DERUXTECAN-NXKI
     Indication: Thyroid cancer
     Dosage: 440 MG, ONCE EVERY 3 WK
     Route: 042
     Dates: start: 20250128

REACTIONS (1)
  - Death [Fatal]

NARRATIVE: CASE EVENT DATE: 20250402
